FAERS Safety Report 8554993-1 (Version None)
Quarter: 2012Q3

REPORT INFORMATION
  Report Type: 
  Country: None (occurrence: None)
  Receive Date: 20120731
  Receipt Date: 20120727
  Transmission Date: 20120928
  Serious: Yes (Hospitalization)
  Sender: FDA-Public Use
  Company Number: US-PFIZER INC-2012182920

PATIENT
  Sex: Female
  Weight: 61.678 kg

DRUGS (7)
  1. FENTANYL [Concomitant]
     Indication: OSTEOARTHRITIS
  2. VITAMIN D [Concomitant]
     Indication: OSTEOPOROSIS
     Dosage: 5000 IU, UNK
  3. FENTANYL [Concomitant]
     Indication: OSTEOPOROSIS
     Dosage: 100 UG, UNK
  4. NEURONTIN [Suspect]
     Indication: NEUROPATHY PERIPHERAL
     Dosage: UNK, 4X/DAY
     Dates: start: 20120101, end: 20120101
  5. COUMADIN [Concomitant]
     Indication: FACTOR V DEFICIENCY
  6. DILANTIN [Suspect]
     Indication: EPILEPSY
     Dosage: 300 MG, 1X/DAY
  7. COUMADIN [Concomitant]
     Indication: CONGENITAL COAGULOPATHY
     Dosage: 6 MG, 1X/DAY

REACTIONS (1)
  - CONVULSION [None]
